FAERS Safety Report 7083764-0 (Version None)
Quarter: 2010Q4

REPORT INFORMATION
  Report Type: 
  Country: None (occurrence: None)
  Receive Date: 20101104
  Receipt Date: 20101101
  Transmission Date: 20110411
  Serious: Yes (Hospitalization)
  Sender: FDA-Public Use
  Company Number: US-MERCK-1004USA04558

PATIENT
  Age: 75 Year
  Sex: Male
  Weight: 92 kg

DRUGS (4)
  1. JANUVIA [Suspect]
     Indication: TYPE 2 DIABETES MELLITUS
     Route: 048
     Dates: start: 20080827, end: 20100509
  2. JANUVIA [Suspect]
     Route: 048
     Dates: start: 20070103, end: 20080826
  3. LIPITOR [Concomitant]
     Route: 065
  4. COUMADIN [Concomitant]
     Route: 065

REACTIONS (4)
  - BLOOD CREATININE INCREASED [None]
  - NEPHROLITHIASIS [None]
  - PNEUMONIA [None]
  - RENAL DISORDER [None]
